FAERS Safety Report 21648859 (Version 1)
Quarter: 2022Q4

REPORT INFORMATION
  Report Type: Spontaneous
  Country: US (occurrence: None)
  Receive Date: 20221123
  Receipt Date: 20221123
  Transmission Date: 20230113
  Serious: No
  Sender: FDA-Public Use
  Company Number: None

PATIENT
  Age: 57 Year
  Sex: Female
  Weight: 65.18 kg

DRUGS (6)
  1. AKYNZEO (FOSNETUPITANT\PALONOSETRON HYDROCHLORIDE) [Suspect]
     Active Substance: FOSNETUPITANT\PALONOSETRON HYDROCHLORIDE
     Indication: Cervix carcinoma
     Dosage: OTHER QUANTITY : 235-0.25MG;?OTHER FREQUENCY : Q3WEEKS;?
     Route: 042
  2. ALOXI [Concomitant]
     Active Substance: PALONOSETRON HYDROCHLORIDE
  3. CARBOPLATIN [Concomitant]
     Active Substance: CARBOPLATIN
  4. CISPLATIN [Concomitant]
     Active Substance: CISPLATIN
  5. KEYTRUDA [Concomitant]
     Active Substance: PEMBROLIZUMAB
  6. PACLITAXEL [Concomitant]
     Active Substance: PACLITAXEL

REACTIONS (1)
  - Hospice care [None]
